FAERS Safety Report 21158737 (Version 1)
Quarter: 2022Q3

REPORT INFORMATION
  Report Type: Spontaneous
  Country: IR (occurrence: IR)
  Receive Date: 20220802
  Receipt Date: 20220802
  Transmission Date: 20221027
  Serious: Yes (Other)
  Sender: FDA-Public Use
  Company Number: IR-SUN PHARMACEUTICAL INDUSTRIES LTD-2022R1-346443

PATIENT
  Age: 42 Year
  Sex: Male

DRUGS (1)
  1. METHADONE [Suspect]
     Active Substance: METHADONE HYDROCHLORIDE
     Indication: Substance abuse
     Dosage: 40 MILLIGRAM, DAILY
     Route: 065

REACTIONS (3)
  - Central sleep apnoea syndrome [Recovering/Resolving]
  - Intentional product misuse [Unknown]
  - Drug dependence [Unknown]
